FAERS Safety Report 4871379-1 (Version None)
Quarter: 2006Q1

REPORT INFORMATION
  Report Type: 
  Country: None (occurrence: None)
  Receive Date: 20060103
  Receipt Date: 20051005
  Transmission Date: 20060701
  Serious: Yes (Hospitalization, Disabling)
  Sender: FDA-Public Use
  Company Number: US-MERCK-0510USA04129

PATIENT
  Age: 57 Year
  Sex: Male
  Weight: 73 kg

DRUGS (2)
  1. VIOXX [Suspect]
     Indication: ARTHRITIS
     Route: 048
     Dates: start: 19990101, end: 20010101
  2. MORPHINE SULFATE [Concomitant]
     Route: 065

REACTIONS (4)
  - CARDIAC DISORDER [None]
  - CARDIOVASCULAR DISORDER [None]
  - CHEST PAIN [None]
  - HYPOTENSION [None]
